FAERS Safety Report 11938082 (Version 1)
Quarter: 2016Q1

REPORT INFORMATION
  Report Type: Spontaneous
  Country: CA (occurrence: CA)
  Receive Date: 20160122
  Receipt Date: 20160122
  Transmission Date: 20160526
  Serious: Yes (Other)
  Sender: FDA-Public Use
  Company Number: CA-TEVA-627364ACC

PATIENT
  Age: 51 Year
  Sex: Male
  Weight: 83.99 kg

DRUGS (1)
  1. CARBAMAZEPINE. [Suspect]
     Active Substance: CARBAMAZEPINE
     Indication: EPILEPSY
     Dosage: 400 MILLIGRAM DAILY;
     Route: 048

REACTIONS (3)
  - Feeling abnormal [Recovered/Resolved]
  - Seizure [Recovered/Resolved]
  - Product substitution issue [Recovered/Resolved]
